FAERS Safety Report 16783915 (Version 1)
Quarter: 2019Q3

REPORT INFORMATION
  Report Type: Spontaneous
  Country: US (occurrence: US)
  Receive Date: 20190909
  Receipt Date: 20190909
  Transmission Date: 20191005
  Serious: Yes (Life-Threatening, Hospitalization, Other)
  Sender: FDA-Public Use
  Company Number: US-STRIDES ARCOLAB LIMITED-2019SP001611

PATIENT
  Age: 70 Year
  Sex: Female

DRUGS (7)
  1. AZATHIOPRINE. [Suspect]
     Active Substance: AZATHIOPRINE
     Indication: TRANSPLANT REJECTION
  2. RITUXIMAB. [Suspect]
     Active Substance: RITUXIMAB
     Indication: TRANSPLANT REJECTION
     Dosage: UNK
     Route: 065
  3. IMMUNOGLOBULIN                     /00025201/ [Suspect]
     Active Substance: HUMAN IMMUNOGLOBULIN G
     Indication: TRANSPLANT REJECTION
     Dosage: UNK
     Route: 042
  4. RITUXIMAB. [Suspect]
     Active Substance: RITUXIMAB
     Indication: IMMUNOSUPPRESSION
  5. TACROLIMUS. [Suspect]
     Active Substance: TACROLIMUS
     Indication: TRANSPLANT REJECTION
     Dosage: UNK
     Route: 065
  6. IMMUNOGLOBULIN                     /00025201/ [Suspect]
     Active Substance: HUMAN IMMUNOGLOBULIN G
     Indication: IMMUNOSUPPRESSION
  7. AZATHIOPRINE. [Suspect]
     Active Substance: AZATHIOPRINE
     Indication: IMMUNOSUPPRESSION
     Dosage: UNK
     Route: 065

REACTIONS (19)
  - Klebsiella infection [Recovered/Resolved]
  - Nausea [Recovered/Resolved]
  - Abnormal loss of weight [Recovered/Resolved]
  - Pyrexia [Recovered/Resolved]
  - Haemoptysis [Recovered/Resolved]
  - Lung infiltration [Recovered/Resolved]
  - Large intestinal ulcer [Recovered/Resolved]
  - Strongyloidiasis [Recovered/Resolved]
  - Wheezing [Recovered/Resolved]
  - Eosinophilia [Recovered/Resolved]
  - Abdominal pain lower [Recovered/Resolved]
  - Colitis [Recovered/Resolved]
  - Gastrointestinal necrosis [Recovered/Resolved]
  - Abdominal tenderness [Recovered/Resolved]
  - Leukopenia [Recovered/Resolved]
  - Asthenia [Recovered/Resolved]
  - Abdominal distension [Recovered/Resolved]
  - Hyponatraemia [Recovered/Resolved]
  - Dyspnoea [Recovered/Resolved]
